FAERS Safety Report 17130219 (Version 1)
Quarter: 2019Q4

REPORT INFORMATION
  Report Type: Spontaneous
  Country: IN (occurrence: IN)
  Receive Date: 20191209
  Receipt Date: 20191209
  Transmission Date: 20200122
  Serious: Yes (Death, Hospitalization)
  Sender: FDA-Public Use
  Company Number: IN-PFIZER INC-2017164265

PATIENT
  Age: 61 Year
  Sex: Female

DRUGS (3)
  1. LETROZOLE. [Concomitant]
     Active Substance: LETROZOLE
     Dosage: 2.5 MG, 1X/DAY (D1-28) (X2 CYCLE)
     Dates: start: 20161103, end: 201709
  2. SHELCAL [Concomitant]
     Active Substance: CALCIUM CARBONATE\CHOLECALCIFEROL
     Dosage: 500 MG, CYCLIC (ONCE A DAY, X2 CYCLE)
  3. PALBACE [Suspect]
     Active Substance: PALBOCICLIB
     Indication: BREAST CANCER METASTATIC
     Dosage: 125 MG, CYCLIC (ONCE A DAY, D1-21, 7 DAYS OFF, X2 CYCLE)
     Route: 048
     Dates: start: 20170228, end: 201712

REACTIONS (5)
  - Pyrexia [Unknown]
  - Jaundice [Unknown]
  - Eating disorder [Unknown]
  - Neoplasm progression [Fatal]
  - Dyspnoea [Fatal]

NARRATIVE: CASE EVENT DATE: 2017
